FAERS Safety Report 8383777-2 (Version None)
Quarter: 2012Q2

REPORT INFORMATION
  Report Type: 
  Country: None (occurrence: None)
  Receive Date: 20120524
  Receipt Date: 20120206
  Transmission Date: 20120825
  Serious: Yes (Death, Other)
  Sender: FDA-Public Use
  Company Number: US-ROCHE-1037245

PATIENT
  Sex: Male
  Weight: 92.2 kg

DRUGS (20)
  1. AVASTIN [Suspect]
     Indication: BILE DUCT CANCER
     Route: 042
     Dates: start: 20111031, end: 20111204
  2. PRILOSEC [Concomitant]
     Route: 048
  3. ALLOPURINOL [Concomitant]
     Route: 048
  4. PRAVASTATIN [Concomitant]
     Route: 048
  5. MAG OXIDE [Concomitant]
     Route: 048
  6. ERGOCALCIFEROL [Concomitant]
     Route: 048
  7. METFORMIN HCL [Concomitant]
     Route: 048
  8. TOPROL-XL [Concomitant]
     Route: 048
  9. CIPROFLOXACIN HCL [Concomitant]
     Route: 048
  10. PREDNISONE [Concomitant]
     Route: 048
  11. LOVENOX [Concomitant]
     Dosage: 100 MG/ML
     Route: 058
  12. LASIX [Concomitant]
     Route: 048
  13. METROGEL [Concomitant]
  14. TRAMADOL HYDROCHLORIDE [Concomitant]
     Route: 048
  15. TARCEVA [Suspect]
     Indication: BILE DUCT CANCER
     Route: 048
     Dates: start: 20111031, end: 20111204
  16. COMPAZINE [Concomitant]
     Route: 048
  17. ALDACTONE [Concomitant]
     Route: 048
  18. BARIUM SULFATE [Concomitant]
     Route: 048
  19. DOCUSATE SODIUM [Concomitant]
     Route: 048
  20. OXYCODONE HCL [Concomitant]
     Dosage: 5-325 MG
     Route: 048

REACTIONS (4)
  - DIARRHOEA [None]
  - RASH [None]
  - DECREASED APPETITE [None]
  - HEPATIC FAILURE [None]
